FAERS Safety Report 12464809 (Version 1)
Quarter: 2016Q2

REPORT INFORMATION
  Report Type: Spontaneous
  Country: US (occurrence: US)
  Receive Date: 20160614
  Receipt Date: 20160614
  Transmission Date: 20160815
  Serious: No
  Sender: FDA-Public Use
  Company Number: US-PFIZER INC-2016286593

PATIENT
  Age: 75 Year
  Sex: Female

DRUGS (2)
  1. SUTENT [Suspect]
     Active Substance: SUNITINIB MALATE
     Indication: PANCREATIC CARCINOMA
     Dosage: 50 MG, CYCLIC (TAKE 1 CAPSULE BY MOUTH EVERY DAY FOR 4 WEEKS, THEN 2 WEEKS OFF)
     Route: 048
  2. VITAMIN D [Concomitant]
     Active Substance: CHOLECALCIFEROL
     Dosage: 5000 IU, UNK

REACTIONS (1)
  - Abdominal discomfort [Not Recovered/Not Resolved]
